FAERS Safety Report 6921174-4 (Version None)
Quarter: 2010Q3

REPORT INFORMATION
  Report Type: 
  Country: None (occurrence: None)
  Receive Date: 20100812
  Receipt Date: 20100802
  Transmission Date: 20110219
  Serious: Yes (Hospitalization)
  Sender: FDA-Public Use
  Company Number: US-TEVA-243416USA

PATIENT
  Age: 52 Year
  Sex: Female

DRUGS (7)
  1. DILTIAZEM HYDROCHLORIDE 30 MG, 60 MG, 90 MG + 120 MG TABLETS [Suspect]
     Indication: HYPERTENSION
     Dosage: CD  ONCE DAILY
  2. CLONIDINE [Suspect]
     Indication: HYPERTENSION
  3. METOPROLOL TARTRATE [Suspect]
     Indication: HYPERTENSION
  4. KALETRA [Interacting]
     Dosage: 200/50 MG
  5. LABETALOL HYDROCHLORIDE [Suspect]
     Route: 042
  6. HYDRALAZINE HCL [Suspect]
  7. NIFEDIPINE [Suspect]
     Dosage: XL
     Route: 048

REACTIONS (4)
  - DRUG INTERACTION [None]
  - ELECTROCARDIOGRAM ABNORMAL [None]
  - HYPOTENSION [None]
  - OVERDOSE [None]
